FAERS Safety Report 8511282-9 (Version None)
Quarter: 2012Q3

REPORT INFORMATION
  Report Type: 
  Country: None (occurrence: None)
  Receive Date: 20120716
  Receipt Date: 20120705
  Transmission Date: 20120928
  Serious: Yes (Hospitalization)
  Sender: FDA-Public Use
  Company Number: US-VERTEX PHARMACEUTICALS INC.-AE-2012-002710

PATIENT
  Sex: Female

DRUGS (8)
  1. PEGINTERFERON ALFA-2A [Concomitant]
     Indication: HEPATITIS C
     Dates: start: 20101215
  2. PEGINTERFERON ALFA-2A [Concomitant]
     Dates: start: 20120320
  3. SOMA [Concomitant]
  4. RIBAVIRIN [Concomitant]
     Indication: HEPATITIS C
     Dates: start: 20100512
  5. INCIVEK [Suspect]
     Indication: HEPATITIS C
     Route: 048
     Dates: start: 20111129
  6. POTASSIUM ROXYCOX [Concomitant]
  7. XANAX [Concomitant]
  8. PREVACID [Concomitant]

REACTIONS (4)
  - HYPOKALAEMIA [None]
  - INFLUENZA LIKE ILLNESS [None]
  - VOMITING [None]
  - NAUSEA [None]
